FAERS Safety Report 20622809 (Version 1)
Quarter: 2022Q1

REPORT INFORMATION
  Report Type: Report from Study
  Country: FR (occurrence: FR)
  Receive Date: 20220322
  Receipt Date: 20220322
  Transmission Date: 20220423
  Serious: Yes (Hospitalization)
  Sender: FDA-Public Use
  Company Number: FR-SERVIER-S21008738

PATIENT

DRUGS (8)
  1. PEGASPARGASE [Suspect]
     Active Substance: PEGASPARGASE
     Indication: Acute lymphocytic leukaemia
     Dosage: 1875 IU, ON D12 AND D43
     Route: 042
     Dates: start: 20190712
  2. TN UNSPECIFIED [Concomitant]
     Indication: Acute lymphocytic leukaemia
     Dosage: 1.1 MG ON D14, D22, D43 AND D50
     Route: 042
     Dates: start: 20190712, end: 20190819
  3. TN UNSPECIFIED [Concomitant]
     Indication: Acute lymphocytic leukaemia
     Dosage: 730 MG, ON D1 AND D9
     Route: 042
     Dates: start: 20190628, end: 20190729
  4. TN UNSPECIFIED [Concomitant]
     Indication: Acute lymphocytic leukaemia
     Dosage: 55 MG (75MG/M?), ON D3-D6, D10-D13 AND D31-D34
     Route: 042
     Dates: start: 20190630, end: 20190811
  5. TN UNSPECIFIED [Concomitant]
     Dosage: 30 MG, D3, D31
     Route: 037
     Dates: start: 20190701, end: 20190801
  6. TN UNSPECIFIED [Concomitant]
     Indication: Acute lymphocytic leukaemia
     Dosage: 46 MG ON D1-D14 AND D29-D42
     Route: 048
     Dates: start: 20190628, end: 20190812
  7. TN UNSPECIFIED [Concomitant]
     Indication: Acute lymphocytic leukaemia
     Dosage: 12 MG ON D3 AND D31
     Route: 037
     Dates: start: 20190630, end: 20190731
  8. TN UNSPECIFIED [Concomitant]
     Indication: Acute lymphocytic leukaemia
     Dosage: 15 MG, D3, D31
     Route: 037
     Dates: start: 20190701, end: 20190801

REACTIONS (1)
  - Corynebacterium sepsis [Recovered/Resolved]

NARRATIVE: CASE EVENT DATE: 20190821
